FAERS Safety Report 7712666-9 (Version None)
Quarter: 2011Q3

REPORT INFORMATION
  Report Type: 
  Country: None (occurrence: None)
  Receive Date: 20110826
  Receipt Date: 20110822
  Transmission Date: 20111222
  Serious: Yes (Hospitalization)
  Sender: FDA-Public Use
  Company Number: US-MERCK-1108USA01413

PATIENT
  Age: 41 Year
  Sex: Female

DRUGS (2)
  1. ZOCOR [Suspect]
     Route: 048
     Dates: start: 20100225
  2. ZOCOR [Suspect]
     Indication: BLOOD CHOLESTEROL INCREASED
     Route: 048
     Dates: start: 20110501, end: 20110718

REACTIONS (4)
  - HEADACHE [None]
  - MYALGIA [None]
  - ARTHROPOD BITE [None]
  - NECK PAIN [None]
